FAERS Safety Report 14934825 (Version 2)
Quarter: 2018Q2

REPORT INFORMATION
  Report Type: Spontaneous
  Country: US (occurrence: US)
  Receive Date: 20180524
  Receipt Date: 20180608
  Transmission Date: 20180711
  Serious: Yes (Hospitalization, Other)
  Sender: FDA-Public Use
  Company Number: US-009507513-1805USA010229

PATIENT
  Age: 63 Year
  Sex: Female
  Weight: 89.34 kg

DRUGS (21)
  1. METFORMIN [Concomitant]
     Active Substance: METFORMIN HYDROCHLORIDE
  2. PRAZOSIN. [Concomitant]
     Active Substance: PRAZOSIN
  3. TRAZODONE HYDROCHLORIDE. [Concomitant]
     Active Substance: TRAZODONE HYDROCHLORIDE
  4. FAMOTIDINE. [Concomitant]
     Active Substance: FAMOTIDINE
  5. JANUVIA [Suspect]
     Active Substance: SITAGLIPTIN PHOSPHATE
     Indication: TYPE 2 DIABETES MELLITUS
     Dosage: UNK
     Route: 048
     Dates: start: 20171012
  6. PRAVASTATIN. [Concomitant]
     Active Substance: PRAVASTATIN
  7. GLIPIZIDE. [Concomitant]
     Active Substance: GLIPIZIDE
  8. LEVOTHYROXINE SODIUM. [Concomitant]
     Active Substance: LEVOTHYROXINE SODIUM
  9. ALBUTEROL. [Concomitant]
     Active Substance: ALBUTEROL
  10. QUETIAPINE FUMARATE. [Concomitant]
     Active Substance: QUETIAPINE FUMARATE
  11. POTASSIUM (UNSPECIFIED) [Concomitant]
     Active Substance: POTASSIUM
  12. ROPINIROLE. [Concomitant]
     Active Substance: ROPINIROLE
  13. BENZTROPINE MESYLATE. [Concomitant]
     Active Substance: BENZTROPINE MESYLATE
  14. FLOVENT [Concomitant]
     Active Substance: FLUTICASONE PROPIONATE
  15. DULOXETINE HYDROCHLORIDE. [Concomitant]
     Active Substance: DULOXETINE HYDROCHLORIDE
  16. PRILOSEC [Concomitant]
     Active Substance: OMEPRAZOLE MAGNESIUM
  17. GABAPENTIN. [Concomitant]
     Active Substance: GABAPENTIN
  18. MONTELUKAST [Concomitant]
     Active Substance: MONTELUKAST SODIUM
  19. LISINOPRIL. [Concomitant]
     Active Substance: LISINOPRIL
  20. HYDROCHLOROTHIAZIDE. [Concomitant]
     Active Substance: HYDROCHLOROTHIAZIDE
  21. SERTRALINE HYDROCHLORIDE. [Concomitant]
     Active Substance: SERTRALINE HYDROCHLORIDE

REACTIONS (5)
  - Glycosylated haemoglobin increased [Recovered/Resolved]
  - Pancreatitis acute [Recovered/Resolved]
  - Abdominal pain [Not Recovered/Not Resolved]
  - Nausea [Not Recovered/Not Resolved]
  - Vomiting [Not Recovered/Not Resolved]

NARRATIVE: CASE EVENT DATE: 20171202
